FAERS Safety Report 25534855 (Version 1)
Quarter: 2025Q3

REPORT INFORMATION
  Report Type: Spontaneous
  Country: US (occurrence: None)
  Receive Date: 20250709
  Receipt Date: 20250709
  Transmission Date: 20251021
  Serious: Yes (Hospitalization)
  Sender: FDA-CTU
  Company Number: None

PATIENT
  Age: 46 Year
  Sex: Female

DRUGS (1)
  1. CAPECITABINE [Suspect]
     Active Substance: CAPECITABINE

REACTIONS (8)
  - Palmar-plantar erythrodysaesthesia syndrome [None]
  - Influenza [None]
  - Bradycardia [None]
  - Musculoskeletal pain [None]
  - Nausea [None]
  - Sleep disorder [None]
  - Dehydration [None]
  - Arrhythmia [None]
